FAERS Safety Report 4662505-8 (Version None)
Quarter: 2005Q2

REPORT INFORMATION
  Report Type: 
  Country: None (occurrence: None)
  Receive Date: 20050513
  Receipt Date: 20050513
  Transmission Date: 20051028
  Serious: Yes (Disabling)
  Sender: FDA-Public Use
  Company Number: None

PATIENT
  Sex: Male
  Weight: 79 kg

DRUGS (1)
  1. AGGRENOX [Suspect]
     Dosage: 1 CAPSULE   QD  ORAL
     Route: 048
     Dates: start: 20041226, end: 20041228

REACTIONS (1)
  - HEADACHE [None]
